FAERS Safety Report 15316974 (Version 4)
Quarter: 2018Q4

REPORT INFORMATION
  Report Type: Report from Study
  Country: AU (occurrence: AU)
  Receive Date: 20180824
  Receipt Date: 20181002
  Transmission Date: 20190204
  Serious: Yes (Hospitalization, Other)
  Sender: FDA-Public Use
  Company Number: AU-MYLANLABS-2017M1079637

PATIENT
  Age: 61 Year
  Sex: Female

DRUGS (2)
  1. CLOZARIL [Suspect]
     Active Substance: CLOZAPINE
     Dosage: UNK
     Route: 048
     Dates: start: 201808, end: 20180827
  2. CLOZARIL [Suspect]
     Active Substance: CLOZAPINE
     Indication: SCHIZOPHRENIA
     Dosage: 475 MG, UNK
     Route: 048
     Dates: start: 20150413, end: 20180822

REACTIONS (7)
  - Mental impairment [Unknown]
  - Neutropenia [Recovering/Resolving]
  - Asthma [Unknown]
  - White blood cell count decreased [Recovered/Resolved]
  - Viral infection [Unknown]
  - Hallucination, auditory [Unknown]
  - Suicidal ideation [Unknown]

NARRATIVE: CASE EVENT DATE: 2018
